FAERS Safety Report 5866959-0 (Version None)
Quarter: 2008Q3

REPORT INFORMATION
  Report Type: 
  Country: None (occurrence: None)
  Receive Date: 20080827
  Receipt Date: 20080813
  Transmission Date: 20090109
  Serious: Yes (Life-Threatening, Other)
  Sender: FDA-Public Use
  Company Number: 1000000618

PATIENT
  Age: 23 Year
  Sex: Female

DRUGS (2)
  1. ESCITALOPRAM [Suspect]
     Dosage: (10MG OR 20 MG)
  2. ABILIFY [Suspect]
     Dosage: 5 MG

REACTIONS (1)
  - ATRIOVENTRICULAR BLOCK COMPLETE [None]
